FAERS Safety Report 14497348 (Version 1)
Quarter: 2018Q1

REPORT INFORMATION
  Report Type: Spontaneous
  Country: US (occurrence: US)
  Receive Date: 20180207
  Receipt Date: 20180207
  Transmission Date: 20180509
  Serious: Yes (Other)
  Sender: FDA-Public Use
  Company Number: US-GLAXOSMITHKLINE-US2018018212

PATIENT
  Age: 79 Year
  Sex: Female

DRUGS (1)
  1. DICLOFENAC SODIUM GEL [Suspect]
     Active Substance: DICLOFENAC SODIUM
     Indication: PRODUCT USED FOR UNKNOWN INDICATION
     Dosage: UNK
     Dates: start: 201712, end: 20180128

REACTIONS (3)
  - Application site pruritus [Not Recovered/Not Resolved]
  - Product administered at inappropriate site [Unknown]
  - Application site urticaria [Not Recovered/Not Resolved]
